FAERS Safety Report 7601399-5 (Version None)
Quarter: 2011Q2

REPORT INFORMATION
  Report Type: 
  Country: None (occurrence: None)
  Receive Date: 20110629
  Receipt Date: 20110302
  Transmission Date: 20111010
  Serious: Yes (Hospitalization)
  Sender: FDA-Public Use
  Company Number: WAES 1103USA00470

PATIENT
  Sex: Male

DRUGS (1)
  1. HYZAAR [Suspect]
     Dosage: PO
     Route: 048

REACTIONS (1)
  - ADVERSE DRUG REACTION [None]
